FAERS Safety Report 20837956 (Version 1)
Quarter: 2022Q2

REPORT INFORMATION
  Report Type: Spontaneous
  Country: US (occurrence: US)
  Receive Date: 20220517
  Receipt Date: 20220517
  Transmission Date: 20220721
  Serious: No
  Sender: FDA-Public Use
  Company Number: US-Accord-239540

PATIENT
  Age: 74 Year
  Sex: Female

DRUGS (2)
  1. ATORVASTATIN [Interacting]
     Active Substance: ATORVASTATIN
     Indication: Product used for unknown indication
  2. KORLYM [Interacting]
     Active Substance: MIFEPRISTONE
     Indication: Product used for unknown indication

REACTIONS (4)
  - Pelvic discomfort [Unknown]
  - Malaise [Unknown]
  - Nasopharyngitis [Unknown]
  - Drug interaction [Unknown]
